FAERS Safety Report 7199502-7 (Version None)
Quarter: 2010Q4

REPORT INFORMATION
  Report Type: 
  Country: None (occurrence: None)
  Receive Date: 20101228
  Receipt Date: 20101215
  Transmission Date: 20110411
  Serious: Yes (Other)
  Sender: FDA-Public Use
  Company Number: PHHY2010IE85243

PATIENT
  Age: 4 Year
  Sex: Female

DRUGS (1)
  1. FEMARA [Suspect]
     Indication: PSEUDOPRECOCIOUS PUBERTY
     Dosage: 2.5 MG, UNK
     Dates: start: 20101006

REACTIONS (1)
  - ECZEMA [None]
